FAERS Safety Report 8073679-3 (Version None)
Quarter: 2012Q1

REPORT INFORMATION
  Report Type: 
  Country: None (occurrence: None)
  Receive Date: 20120126
  Receipt Date: 20120120
  Transmission Date: 20120608
  Serious: Yes (Congenital Anomaly)
  Sender: FDA-Public Use
  Company Number: PHHY2011DK106127

PATIENT
  Sex: Male

DRUGS (1)
  1. SERTRALINE HYDROCHLORIDE [Suspect]
     Route: 064
     Dates: start: 20101118, end: 20110614

REACTIONS (2)
  - FOETAL EXPOSURE DURING PREGNANCY [None]
  - FINGER DEFORMITY [None]
